FAERS Safety Report 5757320-8 (Version None)
Quarter: 2008Q2

REPORT INFORMATION
  Report Type: 
  Country: None (occurrence: None)
  Receive Date: 20080603
  Receipt Date: 20080530
  Transmission Date: 20081010
  Serious: Yes (Hospitalization)
  Sender: FDA-Public Use
  Company Number: FR-WYE-G01610708

PATIENT
  Sex: Male

DRUGS (12)
  1. TAZOCILLINE [Suspect]
     Indication: PSEUDOMONAL SEPSIS
     Dosage: UNKNOWN
     Route: 042
     Dates: start: 20080420, end: 20080501
  2. CIPROFLOXACIN HCL [Suspect]
     Indication: PSEUDOMONAL SEPSIS
     Dosage: UNKNOWN
     Route: 048
     Dates: start: 20080420, end: 20080429
  3. AUGMENTIN '125' [Suspect]
     Indication: PSEUDOMONAL SEPSIS
     Dosage: UNKNOWN
     Route: 042
     Dates: start: 20080415, end: 20080420
  4. OFLOXACIN [Suspect]
     Indication: PSEUDOMONAL SEPSIS
     Dosage: UNKNOWN
     Route: 042
     Dates: start: 20080417, end: 20080420
  5. MYFORTIC [Suspect]
     Indication: RENAL TRANSPLANT
     Dosage: UNKNOWN
     Route: 048
     Dates: start: 20071205, end: 20080213
  6. INSULIN [Concomitant]
     Dosage: UNKNOWN
  7. DARBEPOETIN ALFA [Concomitant]
     Dosage: UNKNOWN
  8. FOSRENOL [Suspect]
     Indication: HYPERPHOSPHATAEMIA
     Dosage: UNKNOWN
     Route: 048
     Dates: start: 20080417, end: 20080429
  9. NEUPOGEN [Concomitant]
     Indication: NEUTROPENIA
     Dosage: UNKNOWN
     Dates: start: 20080307, end: 20080307
  10. MABTHERA [Suspect]
     Indication: KIDNEY TRANSPLANT REJECTION
     Dosage: UNKNOWN
     Route: 042
     Dates: start: 20071221, end: 20080117
  11. PROGRAF [Suspect]
     Indication: RENAL TRANSPLANT
     Dosage: UNKNOWN
     Dates: start: 20070308
  12. PREDNISOLONE [Concomitant]
     Dosage: UNKNOWN

REACTIONS (2)
  - AGRANULOCYTOSIS [None]
  - SHIFT TO THE LEFT [None]
